FAERS Safety Report 5885520-5 (Version None)
Quarter: 2008Q3

REPORT INFORMATION
  Report Type: 
  Country: None (occurrence: None)
  Receive Date: 20080915
  Receipt Date: 20080915
  Transmission Date: 20090109
  Serious: Yes (Death)
  Sender: FDA-Public Use
  Company Number: None

PATIENT

DRUGS (1)
  1. METHADONE HCL [Suspect]
     Dosage: TABLET

REACTIONS (3)
  - BREATH SOUNDS ABNORMAL [None]
  - FEELING ABNORMAL [None]
  - MEDICATION ERROR [None]
